FAERS Safety Report 19942136 (Version 1)
Quarter: 2021Q4

REPORT INFORMATION
  Report Type: Spontaneous
  Country: US (occurrence: US)
  Receive Date: 20211011
  Receipt Date: 20211011
  Transmission Date: 20220303
  Serious: Yes (unspecified)
  Sender: FDA-Public Use
  Company Number: None

PATIENT
  Age: 62 Year
  Sex: Female
  Weight: 122.85 kg

DRUGS (2)
  1. VALSARTAN [Suspect]
     Active Substance: VALSARTAN
     Indication: Hypertension
     Route: 048
     Dates: start: 20210211, end: 20211006
  2. VALSARTAN [Concomitant]
     Active Substance: VALSARTAN
     Dates: start: 20201120, end: 20211006

REACTIONS (3)
  - Product substitution issue [None]
  - Nasal congestion [None]
  - Chest discomfort [None]

NARRATIVE: CASE EVENT DATE: 20210211
